FAERS Safety Report 25257031 (Version 1)
Quarter: 2025Q2

REPORT INFORMATION
  Report Type: Spontaneous
  Country: US (occurrence: None)
  Receive Date: 20250430
  Receipt Date: 20250430
  Transmission Date: 20250716
  Serious: Yes (Disabling)
  Sender: FDA-CTU
  Company Number: None

PATIENT
  Age: 31 Year
  Sex: Female

DRUGS (1)
  1. MOUNJARO [Suspect]
     Active Substance: TIRZEPATIDE
     Indication: Weight decreased

REACTIONS (6)
  - Eye pain [None]
  - Eye pain [None]
  - Axillary pain [None]
  - Neck pain [None]
  - Inflammation [None]
  - Product formulation issue [None]

NARRATIVE: CASE EVENT DATE: 20250429
